FAERS Safety Report 8575083-8 (Version None)
Quarter: 2012Q2

REPORT INFORMATION
  Report Type: 
  Country: None (occurrence: None)
  Receive Date: 20120423
  Receipt Date: 20091030
  Transmission Date: 20120825
  Serious: Yes (Hospitalization)
  Sender: FDA-Public Use
  Company Number: PHHY2008US20385

PATIENT
  Age: 33 Year
  Sex: Female
  Weight: 119 kg

DRUGS (2)
  1. EXJADE [Suspect]
     Indication: SICKLE CELL ANAEMIA
     Dosage: 1000 MG, QD, ORAL, 1500 MG, DAILY, ORAL
     Route: 048
     Dates: start: 20080814
  2. EXJADE [Suspect]
     Indication: SICKLE CELL ANAEMIA
     Dosage: 1000 MG, QD, ORAL, 1500 MG, DAILY, ORAL
     Route: 048
     Dates: end: 20090828

REACTIONS (6)
  - DIARRHOEA [None]
  - VOMITING [None]
  - SICKLE CELL ANAEMIA WITH CRISIS [None]
  - DEHYDRATION [None]
  - NAUSEA [None]
  - TREATMENT NONCOMPLIANCE [None]
